FAERS Safety Report 8132716-8 (Version None)
Quarter: 2012Q1

REPORT INFORMATION
  Report Type: 
  Country: None (occurrence: None)
  Receive Date: 20120213
  Receipt Date: 20120206
  Transmission Date: 20120608
  Serious: Yes (Death)
  Sender: FDA-Public Use
  Company Number: US-PFIZER INC-2012019412

PATIENT

DRUGS (1)
  1. DEPO-MEDROL [Suspect]
     Dosage: UNK
     Route: 042

REACTIONS (2)
  - DEATH [None]
  - WRONG DRUG ADMINISTERED [None]
